FAERS Safety Report 4957074-9 (Version None)
Quarter: 2006Q1

REPORT INFORMATION
  Report Type: 
  Country: None (occurrence: None)
  Receive Date: 20060323
  Receipt Date: 20060311
  Transmission Date: 20060701
  Serious: Yes (Other)
  Sender: FDA-Public Use
  Company Number: 2006024741

PATIENT
  Age: 45 Year
  Sex: Male
  Weight: 133.8111 kg

DRUGS (4)
  1. NORVASC [Suspect]
     Indication: HYPERTENSION
     Dosage: 10 MG (10 MG, QD INTERVAL: EVERY DAY) ORAL
     Route: 048
  2. CHONDROITIN / GLUCOSAMINE [Concomitant]
  3. MOBIC [Concomitant]
  4. CLARINEX [Concomitant]

REACTIONS (6)
  - ACCIDENT AT WORK [None]
  - DRUG INEFFECTIVE [None]
  - LIMB INJURY [None]
  - SURGICAL PROCEDURE REPEATED [None]
  - TENDON DISORDER [None]
  - THERAPY NON-RESPONDER [None]
